FAERS Safety Report 20062655 (Version 1)
Quarter: 2021Q4

REPORT INFORMATION
  Report Type: Spontaneous
  Country: AT (occurrence: None)
  Receive Date: 20211112
  Receipt Date: 20211112
  Transmission Date: 20220303
  Serious: Yes (Other)
  Sender: FDA-Public Use
  Company Number: AT-009507513-2110AUT005242

PATIENT
  Age: 79 Year
  Sex: Male

DRUGS (3)
  1. PACLITAXEL [Suspect]
     Active Substance: PACLITAXEL
     Indication: Product used for unknown indication
     Dosage: UNK
     Route: 065
     Dates: start: 202008
  2. PEMBROLIZUMAB [Suspect]
     Active Substance: PEMBROLIZUMAB
     Indication: Squamous cell carcinoma
     Dosage: 200 MILLIGRAM, Q3W
     Route: 065
     Dates: start: 20200206, end: 202004
  3. CETUXIMAB [Suspect]
     Active Substance: CETUXIMAB
     Indication: Product used for unknown indication
     Dosage: UNK
     Route: 065
     Dates: start: 202008

REACTIONS (5)
  - Thoracic vertebral fracture [Unknown]
  - Pneumonia bacterial [Recovered/Resolved]
  - Malignant neoplasm progression [Unknown]
  - Overgrowth fungal [Recovered/Resolved]
  - Laryngopharyngitis [Recovered/Resolved]

NARRATIVE: CASE EVENT DATE: 20200401
